FAERS Safety Report 8408997 (Version 24)
Quarter: 2016Q2

REPORT INFORMATION
  Report Type: Report from Study
  Country: CA (occurrence: CA)
  Receive Date: 20120216
  Receipt Date: 20160510
  Transmission Date: 20160815
  Serious: Yes (Hospitalization, Other)
  Sender: FDA-Public Use
  Company Number: CA-ROCHE-1036131

PATIENT
  Age: 84 Year
  Sex: Female
  Weight: 66.5 kg

DRUGS (15)
  1. ACTEMRA [Suspect]
     Active Substance: TOCILIZUMAB
     Route: 042
     Dates: start: 20160113
  2. ACTEMRA [Suspect]
     Active Substance: TOCILIZUMAB
     Route: 042
     Dates: start: 20130130
  3. NORVASC [Concomitant]
     Active Substance: AMLODIPINE BESYLATE
     Indication: HYPERTENSION
  4. LUMIGAN [Concomitant]
     Active Substance: BIMATOPROST
     Route: 047
  5. ENBREL [Concomitant]
     Active Substance: ETANERCEPT
  6. SYNTHROID [Concomitant]
     Active Substance: LEVOTHYROXINE SODIUM
  7. COSOPT [Concomitant]
     Active Substance: DORZOLAMIDE HYDROCHLORIDE\TIMOLOL MALEATE
     Route: 047
  8. ACTEMRA [Suspect]
     Active Substance: TOCILIZUMAB
     Route: 042
     Dates: start: 20120801
  9. ACTEMRA [Suspect]
     Active Substance: TOCILIZUMAB
     Route: 042
     Dates: start: 20150820
  10. PREDNISONE. [Concomitant]
     Active Substance: PREDNISONE
  11. ACTEMRA [Suspect]
     Active Substance: TOCILIZUMAB
     Route: 042
     Dates: start: 20140606
  12. METHOTREXATE [Concomitant]
     Active Substance: METHOTREXATE
  13. FOSAMAX [Concomitant]
     Active Substance: ALENDRONATE SODIUM
     Indication: HYPERTENSION
  14. ACTEMRA [Suspect]
     Active Substance: TOCILIZUMAB
     Indication: RHEUMATOID ARTHRITIS
     Route: 042
     Dates: start: 20101027
  15. EPREX [Concomitant]
     Active Substance: ERYTHROPOIETIN
     Route: 058

REACTIONS (15)
  - Cardiac disorder [Not Recovered/Not Resolved]
  - Blood pressure increased [Unknown]
  - Diarrhoea [Not Recovered/Not Resolved]
  - Hypotension [Unknown]
  - Weight increased [Unknown]
  - Blood pressure systolic increased [Unknown]
  - Rectal haemorrhage [Unknown]
  - Leukopenia [Unknown]
  - Blood pressure diastolic decreased [Unknown]
  - Blood pressure diastolic abnormal [Unknown]
  - Myocardial infarction [Unknown]
  - Blood pressure increased [Unknown]
  - Infusion related reaction [Unknown]
  - Blood pressure diastolic decreased [Unknown]
  - Weight decreased [Unknown]

NARRATIVE: CASE EVENT DATE: 20130917
